FAERS Safety Report 6254796-7 (Version None)
Quarter: 2009Q3

REPORT INFORMATION
  Report Type: 
  Country: None (occurrence: None)
  Receive Date: 20090702
  Receipt Date: 20090622
  Transmission Date: 20100115
  Serious: Yes (Death)
  Sender: FDA-Public Use
  Company Number: JP-PFIZER INC-2009232561

PATIENT
  Age: 76 Year

DRUGS (11)
  1. VORICONAZOLE [Suspect]
     Indication: MUCORMYCOSIS
     Dosage: 6 MG/KG, 2X/DAY
     Route: 042
     Dates: start: 20071212
  2. MICAFUNGIN SODIUM [Concomitant]
     Indication: MUCORMYCOSIS
     Route: 042
     Dates: start: 20071126, end: 20071211
  3. MEROPEN [Concomitant]
     Route: 042
     Dates: start: 20071212
  4. VANCOMYCIN HYDROCHLORIDE [Concomitant]
     Route: 042
     Dates: start: 20071211
  5. FRAGMIN [Concomitant]
     Route: 042
     Dates: start: 20071211
  6. LASIX [Concomitant]
     Route: 042
  7. SIGMART [Concomitant]
     Route: 042
     Dates: start: 20071211
  8. PREDNISOLONE [Concomitant]
     Route: 042
  9. OMEPRAL [Concomitant]
     Route: 042
  10. INOVAN [Concomitant]
     Route: 042
     Dates: start: 20071212
  11. NORADRENALINE [Concomitant]
     Route: 042
     Dates: start: 20071212

REACTIONS (1)
  - DEATH [None]
